FAERS Safety Report 24786479 (Version 1)
Quarter: 2024Q4

REPORT INFORMATION
  Report Type: Spontaneous
  Country: US (occurrence: US)
  Receive Date: 20241230
  Receipt Date: 20241230
  Transmission Date: 20250115
  Serious: No
  Sender: STALLERGENES
  Company Number: US-AIMMUNE THERAPEUTICS, INC.-2024AIMT00199

PATIENT
  Age: 15 Year
  Sex: Male

DRUGS (4)
  1. PALFORZIA [Suspect]
     Active Substance: PEANUT
     Indication: Anaphylactic reaction
     Dosage: IDE (0.5-6MG), ONCE
  2. PALFORZIA [Suspect]
     Active Substance: PEANUT
     Indication: Food allergy
     Dosage: 300 MG, 1X/DAY
     Dates: start: 202206, end: 20240126
  3. PALFORZIA [Suspect]
     Active Substance: PEANUT
     Dosage: 300 MG, ONCE, LAST DOSE PRIOR THE EVENTS
     Dates: start: 20240124, end: 20240126
  4. PALFORZIA [Suspect]
     Active Substance: PEANUT
     Dosage: 150 MG, 1X/DAY

REACTIONS (2)
  - Dyspnoea [Unknown]
  - Urticaria [Unknown]

NARRATIVE: CASE EVENT DATE: 20240126
